FAERS Safety Report 4911904-5 (Version None)
Quarter: 2006Q1

REPORT INFORMATION
  Report Type: 
  Country: None (occurrence: None)
  Receive Date: 20060215
  Receipt Date: 20060120
  Transmission Date: 20060701
  Serious: Yes (Death)
  Sender: FDA-Public Use
  Company Number: KR-BRISTOL-MYERS SQUIBB COMPANY-13257514

PATIENT
  Age: 51 Year
  Sex: Male

DRUGS (2)
  1. TAXOL [Suspect]
     Indication: METASTATIC GASTRIC CANCER
     Route: 042
     Dates: start: 20020619, end: 20020619
  2. CISPLATIN [Concomitant]
     Indication: METASTATIC GASTRIC CANCER
     Dates: start: 20020619, end: 20020619

REACTIONS (1)
  - MALIGNANT NEOPLASM PROGRESSION [None]
